FAERS Safety Report 7379713-8 (Version None)
Quarter: 2011Q1

REPORT INFORMATION
  Report Type: 
  Country: None (occurrence: None)
  Receive Date: 20110329
  Receipt Date: 20110323
  Transmission Date: 20110831
  Serious: Yes (Life-Threatening, Other)
  Sender: FDA-Public Use
  Company Number: DE-ABBOTT-11P-062-0713982-00

PATIENT
  Sex: Female
  Weight: 65 kg

DRUGS (2)
  1. PREDNISOLONE [Concomitant]
     Indication: PRODUCT USED FOR UNKNOWN INDICATION
     Dosage: AT THE BEGINNING 50MG, CURRENTLY 5MG/D
     Dates: end: 20110101
  2. HUMIRA [Suspect]
     Indication: RHEUMATOID ARTHRITIS
     Route: 058
     Dates: start: 20081201, end: 20101001

REACTIONS (6)
  - PERICARDITIS [None]
  - PLEURISY [None]
  - MYOCARDIAL INFARCTION [None]
  - LUPUS-LIKE SYNDROME [None]
  - PERICARDIAL EFFUSION [None]
  - PLEURAL EFFUSION [None]
